FAERS Safety Report 15743628 (Version 2)
Quarter: 2018Q4

REPORT INFORMATION
  Report Type: Spontaneous
  Country: US (occurrence: US)
  Receive Date: 20181220
  Receipt Date: 20181226
  Transmission Date: 20190205
  Serious: No
  Sender: FDA-Public Use
  Company Number: US-PFIZER INC-2018523266

PATIENT
  Age: 71 Year
  Sex: Female

DRUGS (1)
  1. PHENELZINE SULFATE. [Suspect]
     Active Substance: PHENELZINE SULFATE
     Indication: DEPRESSIVE SYMPTOM
     Dosage: UNK
     Dates: start: 201611

REACTIONS (2)
  - Depression [Recovered/Resolved]
  - Drug ineffective [Unknown]
